FAERS Safety Report 16430942 (Version 2)
Quarter: 2019Q3

REPORT INFORMATION
  Report Type: Spontaneous
  Country: TW (occurrence: TW)
  Receive Date: 20190614
  Receipt Date: 20190702
  Transmission Date: 20191004
  Serious: Yes (Death)
  Sender: FDA-Public Use
  Company Number: TW-ASTRAZENECA-2019SE87410

PATIENT
  Age: 80 Year
  Sex: Male

DRUGS (3)
  1. IMFINZI [Suspect]
     Active Substance: DURVALUMAB
     Indication: NON-SMALL CELL LUNG CANCER
     Route: 042
     Dates: start: 20180612, end: 20190322
  2. CODEINE [Concomitant]
     Active Substance: CODEINE
  3. ACTEIN [Concomitant]

REACTIONS (2)
  - Death [Fatal]
  - Hypothyroidism [Unknown]

NARRATIVE: CASE EVENT DATE: 20190327
